FAERS Safety Report 5103971-3 (Version None)
Quarter: 2006Q3

REPORT INFORMATION
  Report Type: 
  Country: None (occurrence: None)
  Receive Date: 20060911
  Receipt Date: 20060825
  Transmission Date: 20061208
  Serious: Yes (Disabling)
  Sender: FDA-Public Use
  Company Number: 2006JP000428

PATIENT
  Age: 42 Year
  Sex: Female
  Weight: 49.4 kg

DRUGS (18)
  1. PROGRAF [Suspect]
     Indication: LIVER TRANSPLANT
     Dosage: 0.65 MG, BID; 0.4 MG, BID
     Dates: start: 20050627, end: 20050717
  2. PROGRAF [Suspect]
     Indication: LIVER TRANSPLANT
     Dosage: 0.65 MG, BID; 0.4 MG, BID
     Dates: start: 20050718
  3. CYCLOPHOSPHAMIDE [Suspect]
     Indication: LIVER TRANSPLANT
     Dosage: 100 MG, UID/QD, IV DRIP
     Route: 041
     Dates: start: 20050620, end: 20050717
  4. RITUXAN [Concomitant]
  5. TATHION                   (GLUTATHIONE) INJECTION [Concomitant]
  6. STRONGER NEO MINOPHAGEN C (AMINOACETIC ACID, GLYCYRRHIZIC ACID, CYSTEI [Concomitant]
  7. ADELAVIN         (FLAVINE ADENINE DINUCLEOTIDE) [Concomitant]
  8. FLUMARIN              (FLOMOXEF SODIUM) INJECTION [Concomitant]
  9. MIRACLID        (ULINASTATIN) [Concomitant]
  10. SOLU-MEDROL [Concomitant]
  11. ROXATIDINE ACETATE HCL [Concomitant]
  12. FOY          (GABEXATE MESILATE) [Concomitant]
  13. MAGNESIUM SULFATE [Concomitant]
  14. PROSTANDIN (ALPROSTADIL) INJECTION [Concomitant]
  15. HANP INJECTION [Concomitant]
  16. LASIX (FUROSEMIDE) INJECTION [Concomitant]
  17. OMEPRAZOLE [Concomitant]
  18. MEROPEN (MEROPENEM) INJECTION [Concomitant]

REACTIONS (3)
  - CEREBRAL ARTERY STENOSIS [None]
  - CEREBRAL INFARCTION [None]
  - REVERSIBLE POSTERIOR LEUKOENCEPHALOPATHY SYNDROME [None]
